FAERS Safety Report 6898741-X (Version None)
Quarter: 2010Q3

REPORT INFORMATION
  Report Type: 
  Country: None (occurrence: None)
  Receive Date: 20100802
  Receipt Date: 20071128
  Transmission Date: 20110219
  Serious: No
  Sender: FDA-Public Use
  Company Number: US-PFIZER INC-2007100942

PATIENT
  Sex: Female
  Weight: 95.3 kg

DRUGS (9)
  1. LYRICA [Suspect]
     Indication: FIBROMYALGIA
     Dates: start: 20071121
  2. IBUPROFEN [Concomitant]
  3. MAGNESIUM [Concomitant]
  4. MULTI-VITAMINS [Concomitant]
  5. ACETYLSALICYLIC ACID SRT [Concomitant]
  6. ZOLOFT [Concomitant]
  7. VERAPAMIL - SLOW RELEASE [Concomitant]
  8. FLEXERIL [Concomitant]
  9. METROGEL [Concomitant]
     Route: 061

REACTIONS (2)
  - LIMB INJURY [None]
  - OEDEMA PERIPHERAL [None]
